FAERS Safety Report 9150366 (Version 1)
Quarter: 2013Q1

REPORT INFORMATION
  Report Type: Spontaneous
  Country: FR (occurrence: FR)
  Receive Date: 20130308
  Receipt Date: 20130308
  Transmission Date: 20140127
  Serious: Yes (Life-Threatening, Hospitalization)
  Sender: FDA-Public Use
  Company Number: FR-B.I. PHARMACEUTICALS,INC./RIDGEFIELD-2013-FF-00622FF

PATIENT
  Age: 91 Year
  Sex: Female

DRUGS (3)
  1. PRADAXA [Suspect]
     Indication: ATRIAL FIBRILLATION
     Dosage: 220 MG
     Route: 048
     Dates: start: 20120907, end: 20121218
  2. CARDENSIEL [Concomitant]
     Indication: ATRIAL FIBRILLATION
     Dosage: 5 MG
     Dates: start: 20120907
  3. LASILIX [Concomitant]
     Indication: ACUTE PULMONARY OEDEMA
     Dosage: 40 MG
     Dates: start: 20120907

REACTIONS (5)
  - Anaemia [Not Recovered/Not Resolved]
  - Haemorrhage [Not Recovered/Not Resolved]
  - Drug level increased [Not Recovered/Not Resolved]
  - Haemorrhagic anaemia [Not Recovered/Not Resolved]
  - Overdose [Not Recovered/Not Resolved]
